FAERS Safety Report 13353939 (Version 1)
Quarter: 2017Q1

REPORT INFORMATION
  Report Type: Spontaneous
  Country: US (occurrence: US)
  Receive Date: 20170320
  Receipt Date: 20170320
  Transmission Date: 20170429
  Serious: No
  Sender: FDA-Public Use
  Company Number: None

PATIENT

DRUGS (2)
  1. VANCOMYCIN [Suspect]
     Active Substance: VANCOMYCIN
  2. VECURONIUM [Suspect]
     Active Substance: VECURONIUM BROMIDE

REACTIONS (2)
  - Product name confusion [None]
  - Product label confusion [None]
